FAERS Safety Report 23491625 (Version 2)
Quarter: 2024Q1

REPORT INFORMATION
  Report Type: Report from Study
  Country: CA (occurrence: CA)
  Receive Date: 20240207
  Receipt Date: 20240304
  Transmission Date: 20240410
  Serious: No
  Sender: FDA-Public Use
  Company Number: CA-JNJFOC-20240134902

PATIENT
  Age: 61 Year
  Sex: Male
  Weight: 93 kg

DRUGS (2)
  1. STELARA [Suspect]
     Active Substance: USTEKINUMAB
     Indication: Psoriasis
     Dosage: STRENGTH: 45.00 MG / 0.50 ML
     Route: 058
     Dates: start: 20181030
  2. STELARA [Suspect]
     Active Substance: USTEKINUMAB

REACTIONS (3)
  - COVID-19 [Not Recovered/Not Resolved]
  - Device defective [Unknown]
  - Product dose omission issue [Unknown]

NARRATIVE: CASE EVENT DATE: 20231001
